FAERS Safety Report 21179827 (Version 1)
Quarter: 2022Q3

REPORT INFORMATION
  Report Type: Spontaneous
  Country: US (occurrence: None)
  Receive Date: 20220805
  Receipt Date: 20220805
  Transmission Date: 20221027
  Serious: No
  Sender: FDA-Public Use
  Company Number: None

PATIENT
  Age: 44 Year
  Sex: Male
  Weight: 182 kg

DRUGS (1)
  1. NIRMATRELVIR\RITONAVIR [Suspect]
     Active Substance: NIRMATRELVIR\RITONAVIR
     Indication: COVID-19
     Dates: start: 20220719, end: 20220724

REACTIONS (5)
  - Dysgeusia [None]
  - Diarrhoea [None]
  - Hypertension [None]
  - Myalgia [None]
  - Hyperglycaemia [None]

NARRATIVE: CASE EVENT DATE: 20220726
